FAERS Safety Report 8398666-7 (Version None)
Quarter: 2012Q2

REPORT INFORMATION
  Report Type: 
  Country: None (occurrence: None)
  Receive Date: 20120531
  Receipt Date: 20120523
  Transmission Date: 20120825
  Serious: Yes (Hospitalization)
  Sender: FDA-Public Use
  Company Number: DE-ROCHE-1073351

PATIENT
  Sex: Female

DRUGS (17)
  1. NEBIVOLOL [Concomitant]
     Dates: start: 20120412
  2. LEVOTHYROXINE SODIUM [Concomitant]
     Dates: start: 20120412
  3. RAMIPRIL [Concomitant]
     Dates: start: 20120412
  4. ENOXAPARIN SODIUM [Concomitant]
     Dates: start: 20120412
  5. TORSEMIDE [Concomitant]
     Dates: start: 20120412
  6. TIOTROPIUM BROMIDE [Concomitant]
     Dates: start: 20120412
  7. VINCRISTINE SULFATE [Suspect]
     Indication: B-CELL LYMPHOMA
     Route: 042
     Dates: start: 20120426
  8. PANTOPRAZOLE SODIUM SESQUIHYDRATE [Concomitant]
     Dates: start: 20120412
  9. ACETYLSALICYLIC ACID SRT [Concomitant]
     Dates: start: 20120412
  10. CYCLOPHOSPHAMIDE [Suspect]
     Indication: B-CELL LYMPHOMA
     Route: 042
     Dates: start: 20120426
  11. SIMVASTATIN RATIOPHARM [Concomitant]
     Dates: start: 20120412
  12. TRIMETHOPRIM + SULFAMETHOXAZOLE [Concomitant]
     Dates: start: 20120412
  13. RITUXIMAB [Suspect]
     Indication: B-CELL LYMPHOMA
     Route: 042
     Dates: start: 20120425
  14. DOXORUBICIN HCL [Suspect]
     Indication: B-CELL LYMPHOMA
     Route: 042
     Dates: start: 20120426
  15. PREDNISOLONE [Suspect]
     Indication: B-CELL LYMPHOMA
     Dates: start: 20120426, end: 20120430
  16. NEULASTA [Suspect]
     Indication: B-CELL LYMPHOMA
     Route: 058
     Dates: start: 20120429
  17. ACYCLOVIR [Concomitant]
     Dates: start: 20120412

REACTIONS (4)
  - SYNCOPE [None]
  - SEPSIS [None]
  - HYPOTENSION [None]
  - NEUTROPENIA [None]
